FAERS Safety Report 5474358-9 (Version None)
Quarter: 2007Q4

REPORT INFORMATION
  Report Type: 
  Country: None (occurrence: None)
  Receive Date: 20071002
  Receipt Date: 20070920
  Transmission Date: 20080405
  Serious: Yes (Other)
  Sender: FDA-Public Use
  Company Number: PHBS2007BR15740

PATIENT
  Age: 5 Year
  Sex: Female
  Weight: 19 kg

DRUGS (9)
  1. CATAFLAM [Suspect]
     Indication: PHARYNGOLARYNGEAL PAIN
     Dosage: 7 GTT, TID
     Route: 048
     Dates: start: 20070918, end: 20070919
  2. CATAFLAM [Suspect]
     Dosage: 18 GTT, TID
     Route: 048
     Dates: start: 20070919
  3. BEROTEC [Concomitant]
     Indication: DYSPNOEA
     Dates: start: 20070920
  4. ATROVENT [Concomitant]
     Dates: start: 20070920
  5. FLUID/ELECTROLYTE REPLACEMENT THERAPY [Concomitant]
  6. CETOTIPHEN [Concomitant]
     Dosage: 3.5 ML, BID
  7. AMINOVAC [Concomitant]
     Indication: ALLERGIC BRONCHITIS
     Dosage: 3 GTT, BID
     Route: 048
  8. AMOXICILLIN [Concomitant]
     Dosage: 6 ML, TID
  9. DEXAMETHASONE 0.5MG TAB [Concomitant]
     Indication: PHARYNGOLARYNGEAL PAIN
     Dosage: 6 ML, TID
     Route: 048

REACTIONS (3)
  - DYSPNOEA [None]
  - PYREXIA [None]
  - VOMITING [None]
